FAERS Safety Report 6067217-4 (Version None)
Quarter: 2009Q1

REPORT INFORMATION
  Report Type: 
  Country: None (occurrence: None)
  Receive Date: 20090205
  Receipt Date: 20090127
  Transmission Date: 20090719
  Serious: Yes (Other)
  Sender: FDA-Public Use
  Company Number: PHEH2008US01226

PATIENT
  Sex: Female

DRUGS (6)
  1. AREDIA [Suspect]
     Indication: METASTASES TO BONE
     Dosage: 90 MG IV OVER 2 HOURS
     Dates: start: 19960501
  2. ZOMETA [Suspect]
  3. COUMADIN [Concomitant]
  4. THALOMID [Concomitant]
     Dosage: 50 MG, QD
     Route: 048
  5. AXID [Concomitant]
     Dosage: 150 MG, BID
     Route: 048
  6. BACTRIM [Concomitant]

REACTIONS (27)
  - ABSCESS JAW [None]
  - ACTIVITIES OF DAILY LIVING IMPAIRED [None]
  - ANXIETY [None]
  - BONE DEBRIDEMENT [None]
  - BONE DISORDER [None]
  - BONE MARROW TRANSPLANT [None]
  - CENTRAL VENOUS CATHETERISATION [None]
  - DENTAL FISTULA [None]
  - FACE OEDEMA [None]
  - FISTULA REPAIR [None]
  - GINGIVAL INFECTION [None]
  - INJURY [None]
  - JAW FRACTURE [None]
  - JAW OPERATION [None]
  - MACROGLOSSIA [None]
  - MASS [None]
  - OSTEOMYELITIS [None]
  - OSTEONECROSIS [None]
  - PAIN [None]
  - PAIN IN JAW [None]
  - PERIODONTAL DISEASE [None]
  - PHYSICAL DISABILITY [None]
  - PULMONARY EMBOLISM [None]
  - SEQUESTRECTOMY [None]
  - SPEECH DISORDER [None]
  - TOOTH EXTRACTION [None]
  - TRANSIENT ISCHAEMIC ATTACK [None]
